FAERS Safety Report 24443715 (Version 2)
Quarter: 2024Q4

REPORT INFORMATION
  Report Type: Report from Study
  Country: US (occurrence: US)
  Receive Date: 20241016
  Receipt Date: 20241017
  Transmission Date: 20250115
  Serious: No
  Sender: ROCHE
  Company Number: US-ROCHE-2024557

PATIENT
  Age: 62 Year
  Sex: Female

DRUGS (10)
  1. RITUXAN [Suspect]
     Active Substance: RITUXIMAB
     Indication: Relapsing multiple sclerosis
     Route: 042
  2. RITUXAN [Suspect]
     Active Substance: RITUXIMAB
     Indication: Relapsing multiple sclerosis
  3. CHOLECALCIFEROL [Concomitant]
     Active Substance: CHOLECALCIFEROL
  4. BIOTIN [Concomitant]
     Active Substance: BIOTIN
  5. ZOFRAN [Concomitant]
     Active Substance: ONDANSETRON HYDROCHLORIDE
  6. AMBIEN [Concomitant]
     Active Substance: ZOLPIDEM TARTRATE
  7. ALBUTEROL [Concomitant]
     Active Substance: ALBUTEROL
  8. BACLOFEN [Concomitant]
     Active Substance: BACLOFEN
  9. TROSPIUM [Concomitant]
     Active Substance: TROSPIUM
  10. CARAFATE [Concomitant]
     Active Substance: SUCRALFATE

REACTIONS (2)
  - Off label use [Unknown]
  - No adverse event [Unknown]
